FAERS Safety Report 26180394 (Version 1)
Quarter: 2025Q4

REPORT INFORMATION
  Report Type: Spontaneous
  Country: US (occurrence: US)
  Receive Date: 20251219
  Receipt Date: 20251219
  Transmission Date: 20260118
  Serious: Yes (Other)
  Sender: ALCON
  Company Number: US-ALCON LABORATORIES-ALC2025US007533

PATIENT
  Age: 73 Year
  Sex: Female

DRUGS (1)
  1. ACOLTREMON [Suspect]
     Active Substance: ACOLTREMON
     Indication: Product used for unknown indication
     Dosage: INSTILL 1 DROP INTO EACH EYE TWICE A DAY
     Route: 047
     Dates: start: 20250926, end: 20251127

REACTIONS (6)
  - Tunnel vision [Unknown]
  - Dry eye [Unknown]
  - Eye irritation [Unknown]
  - Eye swelling [Unknown]
  - Eye pain [Unknown]
  - Drug ineffective [Unknown]
